FAERS Safety Report 9090862 (Version 1)
Quarter: 2013Q1

REPORT INFORMATION
  Report Type: Spontaneous
  Country: JP (occurrence: JP)
  Receive Date: 20130131
  Receipt Date: 20130131
  Transmission Date: 20140127
  Serious: Yes (Death)
  Sender: FDA-Public Use
  Company Number: JP-PFIZER INC-2013016619

PATIENT
  Age: 80 Year
  Sex: Male

DRUGS (3)
  1. UNASYN-S [Suspect]
  2. PRODIF [Suspect]
  3. FINIBAX [Suspect]

REACTIONS (1)
  - Interstitial lung disease [Fatal]
